FAERS Safety Report 5028699-X (Version None)
Quarter: 2006Q2

REPORT INFORMATION
  Report Type: 
  Country: None (occurrence: None)
  Receive Date: 20060501
  Receipt Date: 20051201
  Transmission Date: 20061013
  Serious: No
  Sender: FDA-Public Use
  Company Number: 2005PV005261

PATIENT
  Age: 54 Year
  Sex: Female

DRUGS (1)
  1. SYMLIN [Suspect]
     Indication: DIABETES MELLITUS NON-INSULIN-DEPENDENT
     Dosage: 30 MCG;QD;SC
     Route: 058
     Dates: start: 20051108, end: 20051201

REACTIONS (5)
  - ARTHRALGIA [None]
  - HEADACHE [None]
  - INCORRECT DOSE ADMINISTERED [None]
  - MEDICATION ERROR [None]
  - NAUSEA [None]
